FAERS Safety Report 10675209 (Version 1)
Quarter: 2014Q4

REPORT INFORMATION
  Report Type: Spontaneous
  Country: DE (occurrence: DE)
  Receive Date: 20141224
  Receipt Date: 20141224
  Transmission Date: 20150529
  Serious: Yes (Life-Threatening, Hospitalization, Other)
  Sender: FDA-Public Use
  Company Number: DE-GLAXOSMITHKLINE-DE2014GSK039952

PATIENT
  Age: 44 Year
  Sex: Female

DRUGS (11)
  1. QUILONUM RETARD [Interacting]
     Active Substance: LITHIUM CARBONATE
     Dosage: 600 UNK, UNK
     Dates: start: 20130308, end: 20130313
  2. CYMBALTA [Interacting]
     Active Substance: DULOXETINE HYDROCHLORIDE
     Indication: PRODUCT USED FOR UNKNOWN INDICATION
  3. BIPERIDEN [Concomitant]
     Active Substance: BIPERIDEN
  4. ABILIFY [Interacting]
     Active Substance: ARIPIPRAZOLE
     Indication: PRODUCT USED FOR UNKNOWN INDICATION
     Dosage: 30 MG, QD
     Dates: start: 20121207, end: 20130314
  5. QUILONUM RETARD [Suspect]
     Active Substance: LITHIUM CARBONATE
     Indication: PRODUCT USED FOR UNKNOWN INDICATION
     Dosage: 400 MG, QD
     Dates: start: 20130301, end: 20130307
  6. RISPERIDONE. [Interacting]
     Active Substance: RISPERIDONE
     Indication: PRODUCT USED FOR UNKNOWN INDICATION
  7. ELONTRIL [Suspect]
     Active Substance: BUPROPION HYDROCHLORIDE
     Dosage: 300 UNK, UNK
     Dates: start: 20130315
  8. LORAZEPAM. [Concomitant]
     Active Substance: LORAZEPAM
  9. QUILONUM RETARD [Interacting]
     Active Substance: LITHIUM CARBONATE
     Dosage: 200 UNK, UNK
     Dates: start: 20130313
  10. ELONTRIL [Suspect]
     Active Substance: BUPROPION HYDROCHLORIDE
     Indication: PRODUCT USED FOR UNKNOWN INDICATION
     Dosage: 450 MG, QD
     Dates: start: 20130206, end: 20130314
  11. PANTOZOL [Concomitant]
     Active Substance: PANTOPRAZOLE SODIUM

REACTIONS (7)
  - Gait disturbance [Recovered/Resolved]
  - Diplopia [Recovered/Resolved]
  - Diarrhoea [Recovered/Resolved]
  - Serotonin syndrome [Recovered/Resolved]
  - Pyrexia [Recovered/Resolved]
  - Nausea [Recovered/Resolved]
  - Restlessness [Recovered/Resolved]

NARRATIVE: CASE EVENT DATE: 201303
